FAERS Safety Report 23384137 (Version 1)
Quarter: 2024Q1

REPORT INFORMATION
  Report Type: Spontaneous
  Country: US (occurrence: None)
  Receive Date: 20240109
  Receipt Date: 20240109
  Transmission Date: 20240410
  Serious: Yes (Other)
  Sender: FDA-Public Use
  Company Number: None

PATIENT
  Age: 69 Year
  Sex: Female

DRUGS (1)
  1. AMOXICILLIN [Suspect]
     Active Substance: AMOXICILLIN
     Indication: Cystitis
     Dosage: FREQUENCY : EVERY 12 HOURS;?
     Route: 048
     Dates: start: 20240104, end: 20240109

REACTIONS (5)
  - Middle insomnia [None]
  - Nausea [None]
  - Diarrhoea [None]
  - Constipation [None]
  - Hyperphagia [None]

NARRATIVE: CASE EVENT DATE: 20240108
